FAERS Safety Report 14497901 (Version 1)
Quarter: 2018Q1

REPORT INFORMATION
  Report Type: Spontaneous
  Country: US (occurrence: US)
  Receive Date: 20180206
  Receipt Date: 20180206
  Transmission Date: 20180509
  Serious: Yes (Hospitalization)
  Sender: FDA-Public Use
  Company Number: None

PATIENT
  Sex: Male

DRUGS (11)
  1. CALCIUM [Concomitant]
     Active Substance: CALCIUM
  2. SODIUM BICAR [Concomitant]
  3. CALCITRIOL. [Concomitant]
     Active Substance: CALCITRIOL
  4. MUCINEX [Concomitant]
     Active Substance: GUAIFENESIN
  5. RANITIDINE. [Concomitant]
     Active Substance: RANITIDINE
  6. TACROLIMUS. [Suspect]
     Active Substance: TACROLIMUS
     Indication: LUNG TRANSPLANT
     Route: 048
     Dates: start: 20170504
  7. PREDNISONE. [Concomitant]
     Active Substance: PREDNISONE
  8. ULORIC [Concomitant]
     Active Substance: FEBUXOSTAT
  9. TACROLIMUS. [Suspect]
     Active Substance: TACROLIMUS
     Indication: LUNG TRANSPLANT
     Route: 048
     Dates: start: 20171013
  10. ACYCLOVIR. [Concomitant]
     Active Substance: ACYCLOVIR
  11. MIDDODRINE [Concomitant]

REACTIONS (1)
  - Contusion [None]
